FAERS Safety Report 9033366 (Version 2)
Quarter: 2013Q1

REPORT INFORMATION
  Report Type: Spontaneous
  Country: US (occurrence: US)
  Receive Date: 20130128
  Receipt Date: 20130220
  Transmission Date: 20140127
  Serious: No
  Sender: FDA-Public Use
  Company Number: US-009507513-1211USA010791

PATIENT
  Sex: Male
  Weight: 36.28 kg

DRUGS (3)
  1. COPPERTONE WATER BABIES PURE + SIMPLE LOTION SPF 50 [Suspect]
     Indication: PRODUCT USED FOR UNKNOWN INDICATION
     Dosage: UNK UNK, BID
     Route: 061
     Dates: start: 20120629, end: 20120630
  2. FLUOXETINE [Concomitant]
     Indication: AUTISM
     Dosage: UNK, UNKNOWN
  3. FLUOXETINE [Concomitant]
     Indication: ANXIETY

REACTIONS (5)
  - Rash erythematous [Recovered/Resolved]
  - Skin irritation [Recovered/Resolved]
  - Dry skin [Recovered/Resolved]
  - Erythema [Recovered/Resolved]
  - Pruritus [Recovered/Resolved]
